APPROVED DRUG PRODUCT: HALOPERIDOL
Active Ingredient: HALOPERIDOL
Strength: 0.5MG
Dosage Form/Route: TABLET;ORAL
Application: A071235 | Product #002
Applicant: STRIDES PHARMA INTERNATIONAL AG
Approved: Nov 3, 1986 | RLD: No | RS: No | Type: DISCN